FAERS Safety Report 9270431 (Version 10)
Quarter: 2014Q1

REPORT INFORMATION
  Report Type: Spontaneous
  Country: US (occurrence: US)
  Receive Date: 20130503
  Receipt Date: 20140303
  Transmission Date: 20141002
  Serious: Yes (Death, Hospitalization)
  Sender: FDA-Public Use
  Company Number: US-ALLERGAN-1306547US

PATIENT
  Age: 16 Year
  Sex: Male
  Weight: 35.6 kg

DRUGS (31)
  1. BOTOX [Suspect]
     Indication: MUSCLE SPASTICITY
     Dosage: 400 UNITS, SINGLE
     Dates: start: 20110518, end: 20110518
  2. BOTOX [Suspect]
     Indication: MUSCLE SPASTICITY
     Dosage: 400 UNITS, SINGLE
     Route: 030
     Dates: start: 20110216, end: 20110216
  3. BOTOX [Suspect]
     Dosage: 400 ML, UNK
     Dates: start: 20101117, end: 20101117
  4. BOTOX [Suspect]
     Dosage: 400 UNITS, SINGLE
     Route: 030
     Dates: start: 20100811, end: 20100811
  5. BOTOX [Suspect]
     Dosage: 400 UNITS, SINGLE
     Dates: start: 20100428, end: 20100428
  6. BOTOX [Suspect]
     Dosage: 400 UNITS, SINGLE
     Dates: start: 20100120, end: 20100120
  7. BOTOX [Suspect]
     Dosage: 400 UNITS, SINGLE
     Dates: start: 20091014, end: 20091014
  8. BOTOX [Suspect]
     Dosage: 270 UNITS, SINGLE
     Dates: start: 20090715, end: 20090715
  9. BOTOX [Suspect]
     Dosage: 270 UNITS, SINGLE
     Dates: start: 20090401, end: 20090401
  10. BOTOX [Suspect]
     Dosage: 270 UNITS, SINGLE
     Dates: start: 20081231, end: 20081231
  11. BOTOX [Suspect]
     Dosage: UNK
     Dates: start: 20080813, end: 20080813
  12. BOTOX [Suspect]
     Dosage: 270 UNITS, SINGLE
     Route: 030
     Dates: start: 20071219, end: 20071219
  13. BOTOX [Suspect]
     Dosage: 270 UNITS, SINGLE
     Route: 030
     Dates: start: 20070418, end: 20070418
  14. BOTOX [Suspect]
     Dosage: 270 UNK, UNK
     Dates: start: 20070822, end: 20070822
  15. BOTOX [Suspect]
     Dosage: 260 UNK, UNK
     Dates: start: 20060215, end: 20060215
  16. BOTOX [Suspect]
     Dosage: UNK
     Dates: start: 20051012, end: 20051012
  17. BOTOX [Suspect]
     Dosage: 225 UNK, UNK
     Dates: start: 20040902, end: 20040902
  18. BOTOX [Suspect]
     Dosage: 250 UNK, UNK
     Dates: start: 20040421, end: 20040421
  19. BOTOX [Suspect]
     Dosage: 250 UNK, UNK
     Dates: start: 20030625, end: 20030625
  20. BOTOX [Suspect]
     Dosage: 250 UNITS, SINGLE
     Dates: start: 20030403, end: 20030403
  21. BOTOX [Suspect]
     Dosage: 320 UNK, UNK
     Dates: start: 20061220, end: 20061220
  22. BOTOX [Suspect]
     Dosage: 270 UNK, UNK
     Dates: start: 20061023, end: 20061023
  23. BOTOX [Suspect]
     Dosage: 260 UNK, UNK
     Dates: start: 20050629, end: 20050629
  24. BOTOX [Suspect]
     Dosage: 240 UNK, UNK
     Dates: start: 20041215, end: 20041215
  25. BOTOX [Suspect]
     Dosage: 250 UNK, UNK
     Dates: start: 20040119, end: 20040119
  26. ALBUTEROL [Concomitant]
     Dosage: UNK UNK, PRN
     Dates: end: 20071019
  27. BACLOFEN [Concomitant]
     Dosage: UNK UNK, TID
     Route: 048
     Dates: start: 20080722
  28. ACETOMINOPHEN WITH CODEINE [Concomitant]
     Dosage: 1 DF, Q6HR
     Route: 048
     Dates: start: 20090624
  29. OXYCODONE [Concomitant]
     Indication: PAIN
     Dosage: 5 ML, PRN
     Dates: start: 20110609
  30. IBUPROFEN [Concomitant]
     Dosage: 15 ML, PRN
  31. PREDNISONE [Concomitant]

REACTIONS (12)
  - Intestinal ischaemia [Fatal]
  - Cardiac arrest [Fatal]
  - Respiratory disorder [Fatal]
  - Gastrointestinal disorder [Fatal]
  - Convulsion [Fatal]
  - Upper respiratory tract infection [Recovered/Resolved]
  - Off label use [Unknown]
  - Pyrexia [Recovered/Resolved]
  - Diarrhoea [Recovered/Resolved]
  - Dysphagia [Unknown]
  - Off label use [Unknown]
  - Oesophageal motility disorder [Not Recovered/Not Resolved]
